FAERS Safety Report 5236784-2 (Version None)
Quarter: 2007Q1

REPORT INFORMATION
  Report Type: 
  Country: None (occurrence: None)
  Receive Date: 20061208
  Receipt Date: 20050323
  Transmission Date: 20070707
  Serious: Yes (Other)
  Sender: FDA-Public Use
  Company Number: 2004UW23361

PATIENT
  Age: 59 Year
  Sex: Male
  Weight: 78.4723 kg

DRUGS (7)
  1. CRESTOR [Suspect]
     Indication: BLOOD CHOLESTEROL INCREASED
     Dosage: 10 MG DAILY PO
     Route: 048
     Dates: start: 20041013, end: 20040101
  2. CRESTOR [Suspect]
     Indication: HYPERLIPIDAEMIA
     Dosage: 10 MG DAILY PO
     Route: 048
     Dates: start: 20041013, end: 20040101
  3. LISINOPRIL [Concomitant]
  4. ZOCOR [Concomitant]
  5. ALLEGRA-D /01367401/ [Concomitant]
  6. NEXIUM [Concomitant]
  7. VASOTEC [Concomitant]

REACTIONS (5)
  - DIZZINESS [None]
  - GAIT DISTURBANCE [None]
  - LIVER DISORDER [None]
  - MUSCULOSKELETAL PAIN [None]
  - MYALGIA [None]
